FAERS Safety Report 16543424 (Version 1)
Quarter: 2019Q3

REPORT INFORMATION
  Report Type: Spontaneous
  Country: US (occurrence: US)
  Receive Date: 20190709
  Receipt Date: 20190709
  Transmission Date: 20191004
  Serious: Yes (Death, Hospitalization, Other)
  Sender: FDA-Public Use
  Company Number: US-AUROBINDO-AUR-APL-2019-037748

PATIENT

DRUGS (1)
  1. DIPHENHYDRAMINE. [Suspect]
     Active Substance: DIPHENHYDRAMINE
     Indication: PRODUCT USED FOR UNKNOWN INDICATION
     Dosage: UNK
     Route: 065

REACTIONS (10)
  - Toxicity to various agents [Unknown]
  - Vasoplegia syndrome [Unknown]
  - Cardiac arrest [Unknown]
  - Brain death [Fatal]
  - Acute respiratory distress syndrome [Unknown]
  - Electrocardiogram QT prolonged [Recovered/Resolved]
  - Seizure [Unknown]
  - Electrocardiogram abnormal [Recovered/Resolved]
  - Unresponsive to stimuli [Unknown]
  - Overdose [Unknown]
